FAERS Safety Report 25509300 (Version 1)
Quarter: 2025Q3

REPORT INFORMATION
  Report Type: Spontaneous
  Country: US (occurrence: US)
  Receive Date: 20250703
  Receipt Date: 20250703
  Transmission Date: 20251021
  Serious: Yes (Hospitalization)
  Sender: SECURA BIO
  Company Number: US-SECURA BIO, INC.-SECUR-2025-US002093

PATIENT
  Sex: Female

DRUGS (2)
  1. COPIKTRA [Suspect]
     Active Substance: DUVELISIB
     Indication: Angioimmunoblastic T-cell lymphoma
     Dosage: 75 MILLIGRAM, BID
     Route: 048
     Dates: start: 202506
  2. COPIKTRA [Suspect]
     Active Substance: DUVELISIB
     Dosage: 50 MILLIGRAM, BID

REACTIONS (3)
  - Hospitalisation [Unknown]
  - Product use in unapproved indication [Unknown]
  - Off label use [Unknown]
